FAERS Safety Report 8470901-6 (Version None)
Quarter: 2012Q2

REPORT INFORMATION
  Report Type: 
  Country: None (occurrence: None)
  Receive Date: 20120627
  Receipt Date: 20120620
  Transmission Date: 20120825
  Serious: Yes (Other)
  Sender: FDA-Public Use
  Company Number: GB-ASTELLAS-2012EU003012

PATIENT
  Sex: Female
  Weight: 53 kg

DRUGS (1)
  1. VESICARE [Suspect]
     Indication: MICTURITION URGENCY
     Dosage: 5 MG, BID
     Route: 048
     Dates: start: 20120301, end: 20120423

REACTIONS (1)
  - CHEST PAIN [None]
